FAERS Safety Report 20231206 (Version 1)
Quarter: 2021Q4

REPORT INFORMATION
  Report Type: Spontaneous
  Country: PL (occurrence: PL)
  Receive Date: 20211227
  Receipt Date: 20211227
  Transmission Date: 20220304
  Serious: Yes (Hospitalization, Other)
  Sender: FDA-Public Use
  Company Number: PL-GLAXOSMITHKLINE-PL2021EME258012

PATIENT
  Age: 29 Year
  Sex: Female

DRUGS (6)
  1. BUPROPION [Interacting]
     Active Substance: BUPROPION
     Indication: Obesity
     Dosage: 150 MG, 1D, FIRST 6 DAYS
     Route: 048
  2. BUPROPION [Interacting]
     Active Substance: BUPROPION
     Dosage: 300 MG, 1D
     Route: 048
  3. VORTIOXETINE [Interacting]
     Active Substance: VORTIOXETINE
     Indication: Obesity
     Dosage: 10 MG, AFTER LAST MEAL
  4. BUPROPION HYDROCHLORIDE\NALTREXONE HYDROCHLORIDE [Suspect]
     Active Substance: BUPROPION HYDROCHLORIDE\NALTREXONE HYDROCHLORIDE
     Indication: Obesity
     Dosage: 2 TABLETS AFTER LUNCH
     Route: 048
  5. ONDANSETRON [Concomitant]
     Active Substance: ONDANSETRON
     Indication: Nausea
     Dosage: 16 MG, 1D
  6. SEMAGLUTIDE [Concomitant]
     Active Substance: SEMAGLUTIDE
     Indication: Obesity
     Dosage: 0.5 MG, ONCE A WEEK
     Route: 058

REACTIONS (12)
  - Serotonin syndrome [Recovered/Resolved]
  - Myopathy [Recovered/Resolved]
  - Myalgia [Recovered/Resolved]
  - Chills [Recovered/Resolved]
  - Hyperhidrosis [Recovered/Resolved]
  - Body temperature increased [Recovered/Resolved]
  - Headache [Recovered/Resolved]
  - Muscle spasms [Recovered/Resolved]
  - Urine flow decreased [Recovered/Resolved]
  - Myoglobinuria [Recovered/Resolved]
  - Renal failure [Recovered/Resolved]
  - Drug interaction [Unknown]
